FAERS Safety Report 6988721-8 (Version None)
Quarter: 2010Q3

REPORT INFORMATION
  Report Type: 
  Country: None (occurrence: None)
  Receive Date: 20100830
  Receipt Date: 20100512
  Transmission Date: 20110219
  Serious: No
  Sender: FDA-Public Use
  Company Number: 2010060589

PATIENT
  Sex: Male

DRUGS (3)
  1. TOVIAZ [Suspect]
     Indication: HYPERTONIC BLADDER
     Dates: start: 20100511
  2. DETROL [Concomitant]
  3. TAMSULOSIN HCL [Concomitant]

REACTIONS (2)
  - DRY MOUTH [None]
  - MICTURITION URGENCY [None]
